FAERS Safety Report 10779249 (Version 2)
Quarter: 2015Q3

REPORT INFORMATION
  Report Type: Report from Study
  Country: IT (occurrence: IT)
  Receive Date: 20150210
  Receipt Date: 20150720
  Transmission Date: 20151125
  Serious: Yes (Other)
  Sender: FDA-Public Use
  Company Number: IT-ROCHE-1535263

PATIENT

DRUGS (4)
  1. CYCLOPHOSPHAMIDE. [Suspect]
     Active Substance: CYCLOPHOSPHAMIDE
     Indication: B-CELL LYMPHOMA RECURRENT
     Dosage: 1GR/M2 DAY 1 OF EVERY CYCLE (28 DAYS) FOR 4 CYCLES.
     Route: 042
  2. YTTRIUM-90 IBRITUMOMAB TIUXETAN [Suspect]
     Active Substance: YTTRIUM Y-90 IBRITUMOMAB TIUXETAN
     Indication: B-CELL LYMPHOMA RECURRENT
     Dosage: 11.1 TO 14.8 MBQ/KG
     Route: 040
  3. RITUXIMAB [Suspect]
     Active Substance: RITUXIMAB
     Indication: B-CELL LYMPHOMA RECURRENT
     Dosage: DAY 4 OF EVERY CYCLE (28 DAYS) FOR 4 CYCLES
     Route: 042
  4. FLUDARABINE [Suspect]
     Active Substance: FLUDARABINE PHOSPHATE
     Indication: B-CELL LYMPHOMA RECURRENT
     Dosage: 3 DAYS OF EVERY CYCLE (28 DAYS) FOR 4 CYCLES
     Route: 065

REACTIONS (2)
  - Blood disorder [Recovering/Resolving]
  - Neutropenia [Recovering/Resolving]
